FAERS Safety Report 7789821-5 (Version None)
Quarter: 2011Q3

REPORT INFORMATION
  Report Type: 
  Country: None (occurrence: None)
  Receive Date: 20110930
  Receipt Date: 20100930
  Transmission Date: 20111222
  Serious: No
  Sender: FDA-Public Use
  Company Number: US-ASTRAZENECA-2010SE46094

PATIENT
  Age: 62 Year
  Sex: Female
  Weight: 52.2 kg

DRUGS (2)
  1. ARIMIDEX [Suspect]
     Indication: NEOPLASM PROPHYLAXIS
     Route: 048
     Dates: start: 20070101
  2. FOSAMAX [Concomitant]

REACTIONS (1)
  - NEUROPATHY PERIPHERAL [None]
